FAERS Safety Report 7010940-5 (Version None)
Quarter: 2010Q3

REPORT INFORMATION
  Report Type: 
  Country: None (occurrence: None)
  Receive Date: 20100922
  Receipt Date: 20100922
  Transmission Date: 20110219
  Serious: Yes (Life-Threatening, Hospitalization)
  Sender: FDA-Public Use
  Company Number: None

PATIENT
  Age: 40 Year
  Sex: Female
  Weight: 71.8 kg

DRUGS (1)
  1. TUBERSOL [Suspect]
     Dosage: SUBDERMAL 058
     Route: 059

REACTIONS (2)
  - ANAPHYLACTIC SHOCK [None]
  - DIARRHOEA [None]
